FAERS Safety Report 23502255 (Version 1)
Quarter: 2024Q1

REPORT INFORMATION
  Report Type: Report from Study
  Country: JP (occurrence: JP)
  Receive Date: 20240208
  Receipt Date: 20240208
  Transmission Date: 20240410
  Serious: Yes (Hospitalization, Other)
  Sender: FDA-Public Use
  Company Number: JP-Stemline Therapeutics, Inc.-2023ST000217

PATIENT
  Age: 61 Year
  Sex: Female
  Weight: 57.4 kg

DRUGS (9)
  1. TAGRAXOFUSP-ERZS [Suspect]
     Active Substance: TAGRAXOFUSP-ERZS
     Indication: Blastic plasmacytoid dendritic cell neoplasia
     Dosage: 12MCG/KG/DAY, ADMINISTRATION FOR 5 DAYS
     Route: 042
     Dates: start: 20230130, end: 20230609
  2. CEFEPIME [Concomitant]
     Active Substance: CEFEPIME HYDROCHLORIDE
     Indication: Infection prophylaxis
     Route: 065
     Dates: start: 20230222, end: 20230227
  3. SOLU-MEDROL [Concomitant]
     Active Substance: METHYLPREDNISOLONE SODIUM SUCCINATE
     Indication: Capillary leak syndrome
     Route: 065
     Dates: start: 20230227
  4. THROMBOMODULIN ALFA [Concomitant]
     Active Substance: THROMBOMODULIN ALFA
     Indication: Tumour lysis syndrome
     Dates: start: 20230225
  5. HISHIPHAGEN-C [Concomitant]
     Indication: Hepatic function abnormal
     Route: 065
     Dates: start: 20230131
  6. ELNEOPA NF NO.1 [Concomitant]
     Indication: Capillary leak syndrome
     Route: 065
     Dates: start: 20230227
  7. OMEPRAZOLE SODIUM [Concomitant]
     Active Substance: OMEPRAZOLE SODIUM
     Indication: Capillary leak syndrome
     Route: 065
     Dates: start: 20230227
  8. URSODIOL [Concomitant]
     Active Substance: URSODIOL
     Indication: Hepatic function abnormal
     Route: 065
     Dates: start: 20230207
  9. HEPARINOID [Concomitant]
     Indication: Dry skin
     Route: 065
     Dates: start: 20230203

REACTIONS (2)
  - Capillary leak syndrome [Recovered/Resolved]
  - Tumour lysis syndrome [Recovered/Resolved]

NARRATIVE: CASE EVENT DATE: 20230221
